FAERS Safety Report 4959669-5 (Version None)
Quarter: 2006Q1

REPORT INFORMATION
  Report Type: 
  Country: None (occurrence: None)
  Receive Date: 20060328
  Receipt Date: 20060320
  Transmission Date: 20060701
  Serious: Yes (Other)
  Sender: FDA-Public Use
  Company Number: 2006039314

PATIENT
  Age: 45 Year
  Sex: Female

DRUGS (4)
  1. LIPITOR [Suspect]
     Indication: BLOOD CHOLESTEROL INCREASED
     Dosage: 10 MG (10 MG, 1 IN 1 D)
     Dates: start: 20060301
  2. ETODOLAC [Concomitant]
  3. RANITIDINE (RANTIDINE) [Concomitant]
  4. DRUG (DRUG) [Concomitant]

REACTIONS (5)
  - DRUG DOSE OMISSION [None]
  - MALAISE [None]
  - MOOD SWINGS [None]
  - SELF INJURIOUS BEHAVIOUR [None]
  - SELF-INJURIOUS IDEATION [None]
